FAERS Safety Report 23548770 (Version 1)
Quarter: 2024Q1

REPORT INFORMATION
  Report Type: Spontaneous
  Country: US (occurrence: US)
  Receive Date: 20240221
  Receipt Date: 20240221
  Transmission Date: 20240410
  Serious: Yes (Hospitalization, Other)
  Sender: FDA-Public Use
  Company Number: US-BRISTOL-MYERS SQUIBB COMPANY-2024-024877

PATIENT
  Age: 59 Year
  Sex: Female

DRUGS (5)
  1. THALIDOMIDE [Suspect]
     Active Substance: THALIDOMIDE
     Indication: Breast cancer female
     Route: 048
     Dates: start: 202311
  2. THALIDOMIDE [Suspect]
     Active Substance: THALIDOMIDE
     Indication: Brain neoplasm
  3. THALIDOMIDE [Suspect]
     Active Substance: THALIDOMIDE
     Indication: Bone cancer
  4. LYNPARZA [Suspect]
     Active Substance: OLAPARIB
     Indication: Product used for unknown indication
     Dates: end: 202312
  5. KISQALI [Concomitant]
     Active Substance: RIBOCICLIB
     Indication: Product used for unknown indication
     Dosage: B/P (TD 600MG/DY)

REACTIONS (3)
  - Sepsis [Unknown]
  - Weight decreased [Unknown]
  - Off label use [Unknown]
